FAERS Safety Report 7078200-4 (Version None)
Quarter: 2010Q4

REPORT INFORMATION
  Report Type: 
  Country: None (occurrence: None)
  Receive Date: 20101101
  Receipt Date: 20101101
  Transmission Date: 20110411
  Serious: No
  Sender: FDA-Public Use
  Company Number: None

PATIENT
  Sex: Male
  Weight: 93.2 kg

DRUGS (2)
  1. RISPERDAL CONSTA [Suspect]
     Indication: SCHIZOPHRENIA
     Dosage: 37.5 MG Q2 WEEKS IM
     Route: 030
     Dates: start: 20101013
  2. RISPERDAL CONSTA [Suspect]

REACTIONS (2)
  - DEVICE ISSUE [None]
  - TREATMENT NONCOMPLIANCE [None]
